FAERS Safety Report 9167386 (Version 1)
Quarter: 2013Q1

REPORT INFORMATION
  Report Type: Spontaneous
  Country: JP (occurrence: None)
  Receive Date: 20130304
  Receipt Date: 20130304
  Transmission Date: 20140127
  Serious: Yes (Death, Other)
  Sender: FDA-Public Use
  Company Number: SYM-2013-00976

PATIENT
  Age: 60 Year
  Sex: Male

DRUGS (2)
  1. FLUOROURACIL (FLUOROURACIL) (500 MILLIGRAM) (FLUOROURACIL) [Suspect]
     Indication: METASTASES TO LIVER
  2. CISPLATIN (CISPLATIN) (5 MILLIGRAM) (CISPLATIN) [Suspect]
     Indication: METASTASES TO LIVER

REACTIONS (4)
  - Hepatic artery occlusion [None]
  - Gastric ulcer [None]
  - Malaise [None]
  - Nausea [None]
